FAERS Safety Report 23821544 (Version 1)
Quarter: 2024Q2

REPORT INFORMATION
  Report Type: Spontaneous
  Country: US (occurrence: US)
  Receive Date: 20240506
  Receipt Date: 20240506
  Transmission Date: 20240716
  Serious: No
  Sender: FDA-Public Use
  Company Number: US-AMERICAN REGENT INC-2023002013

PATIENT
  Sex: Male

DRUGS (1)
  1. CYANOCOBALAMIN [Suspect]
     Active Substance: CYANOCOBALAMIN
     Indication: Product used for unknown indication
     Dosage: 1 MILLILITER, SINGLE
     Route: 058
     Dates: start: 20230804, end: 20230804

REACTIONS (4)
  - Throat tightness [Unknown]
  - Nasal congestion [Unknown]
  - Panic attack [Unknown]
  - Product storage error [Unknown]

NARRATIVE: CASE EVENT DATE: 20230701
